FAERS Safety Report 9174826 (Version 1)
Quarter: 2013Q1

REPORT INFORMATION
  Report Type: Spontaneous
  Country: FR (occurrence: FR)
  Receive Date: 20130320
  Receipt Date: 20130320
  Transmission Date: 20140127
  Serious: Yes (Hospitalization, Other)
  Sender: FDA-Public Use
  Company Number: FR-ASTRAZENECA-2013SE16521

PATIENT
  Age: 8698 Day
  Sex: Female

DRUGS (2)
  1. MOPRAL [Suspect]
     Indication: DYSPEPSIA
     Route: 048
     Dates: start: 20121221, end: 20130106
  2. MOPRAL [Suspect]
     Indication: DYSPEPSIA
     Route: 048
     Dates: start: 20130115, end: 20130121

REACTIONS (2)
  - Exposure during pregnancy [Unknown]
  - Hepatitis [Recovering/Resolving]
